FAERS Safety Report 20743461 (Version 2)
Quarter: 2025Q2

REPORT INFORMATION
  Report Type: Spontaneous
  Country: US (occurrence: US)
  Receive Date: 20220425
  Receipt Date: 20250609
  Transmission Date: 20250717
  Serious: Yes (Hospitalization, Other)
  Sender: AUROBINDO
  Company Number: US-AUROBINDO-AUR-APL-2022-014430

PATIENT
  Age: 28 Year
  Sex: Female

DRUGS (1)
  1. CLONIDINE [Suspect]
     Active Substance: CLONIDINE
     Indication: Product used for unknown indication
     Route: 048

REACTIONS (10)
  - Arteriospasm coronary [Unknown]
  - Left ventricular failure [Unknown]
  - Acute myocardial infarction [Unknown]
  - Bradycardia [Unknown]
  - Dilated cardiomyopathy [Unknown]
  - Suicide attempt [Unknown]
  - Left ventricular hypertrophy [Unknown]
  - Left ventricular dysfunction [Unknown]
  - Chest pain [Unknown]
  - Overdose [Unknown]
